FAERS Safety Report 12300977 (Version 1)
Quarter: 2016Q2

REPORT INFORMATION
  Report Type: Spontaneous
  Country: US (occurrence: US)
  Receive Date: 20160425
  Receipt Date: 20160425
  Transmission Date: 20160815
  Serious: Yes (Hospitalization)
  Sender: FDA-Public Use
  Company Number: US-UCBSA-2016014346

PATIENT
  Age: 55 Year
  Sex: Female

DRUGS (1)
  1. CIMZIA [Suspect]
     Active Substance: CERTOLIZUMAB PEGOL
     Indication: PRODUCT USED FOR UNKNOWN INDICATION
     Dosage: 2 X 200 MG / ML
     Dates: start: 201603, end: 20160331

REACTIONS (2)
  - Influenza like illness [Recovered/Resolved]
  - Meningitis viral [Unknown]

NARRATIVE: CASE EVENT DATE: 201603
